FAERS Safety Report 13775650 (Version 1)
Quarter: 2017Q3

REPORT INFORMATION
  Report Type: Spontaneous
  Country: US (occurrence: US)
  Receive Date: 20170720
  Receipt Date: 20170720
  Transmission Date: 20171127
  Serious: No
  Sender: FDA-Public Use
  Company Number: US-BAUSCH-BL-2016-018057

PATIENT
  Age: 60 Year
  Sex: Female
  Weight: 86.26 kg

DRUGS (5)
  1. FISH OIL [Concomitant]
     Active Substance: FISH OIL
     Indication: SUPPLEMENTATION THERAPY
  2. SYNTHROID [Concomitant]
     Active Substance: LEVOTHYROXINE SODIUM
     Indication: GOITRE
  3. MVI [Concomitant]
     Active Substance: VITAMINS
     Indication: SUPPLEMENTATION THERAPY
  4. BESIVANCE [Suspect]
     Active Substance: BESIFLOXACIN
     Indication: CORNEAL ABRASION
     Dosage: ONE DROP EACH HOUR WHILE AWAKE IN THE RIGHT EYE
     Route: 047
     Dates: start: 20160723, end: 20160727
  5. ATENOLOL. [Concomitant]
     Active Substance: ATENOLOL
     Indication: FLUSHING

REACTIONS (4)
  - Photosensitivity reaction [Recovered/Resolved]
  - Urticaria [Recovered/Resolved]
  - Vision blurred [Recovered/Resolved]
  - Eye irritation [Recovered/Resolved]

NARRATIVE: CASE EVENT DATE: 20160723
